FAERS Safety Report 16461700 (Version 1)
Quarter: 2019Q2

REPORT INFORMATION
  Report Type: Report from Study
  Country: EG (occurrence: CA)
  Receive Date: 20190621
  Receipt Date: 20190621
  Transmission Date: 20190711
  Serious: Yes (Other)
  Sender: FDA-Public Use
  Company Number: CA-TEVA-2019-CA-1064268

PATIENT
  Age: 83 Month

DRUGS (5)
  1. VINCRISTINE [Suspect]
     Active Substance: VINCRISTINE
     Dosage: 0.05 MG/KG/DOSE FOR THE SUBSEQUENT CYCLES
     Route: 065
  2. CYCLOSPORIN A [Suspect]
     Active Substance: CYCLOSPORINE
     Indication: DRUG RESISTANCE
     Dosage: 33 MG/KG/DOSE FOR TWO DAYS
     Route: 065
  3. TENIPOSIDE. [Concomitant]
     Active Substance: TENIPOSIDE
     Indication: RETINOBLASTOMA
     Route: 065
  4. CARBOPLATIN. [Suspect]
     Active Substance: CARBOPLATIN
     Indication: RETINOBLASTOMA
     Dosage: 28 MG/KG/DOSE
     Route: 065
  5. VINCRISTINE [Suspect]
     Active Substance: VINCRISTINE
     Indication: RETINOBLASTOMA
     Dosage: 0.025 MG/KG/DOSE FOR THE FIRST CYCLE
     Route: 065

REACTIONS (1)
  - Deafness [Unknown]
